FAERS Safety Report 24878791 (Version 1)
Quarter: 2025Q1

REPORT INFORMATION
  Report Type: Spontaneous
  Country: US (occurrence: None)
  Receive Date: 20250123
  Receipt Date: 20250123
  Transmission Date: 20250408
  Serious: Yes (Hospitalization, Other)
  Sender: FDA-CTU
  Company Number: None

PATIENT
  Age: 32 Year
  Sex: Female
  Weight: 89.1 kg

DRUGS (2)
  1. KYLEENA [Suspect]
     Active Substance: LEVONORGESTREL
  2. IBUPROFEN [Concomitant]
     Active Substance: IBUPROFEN

REACTIONS (11)
  - Complication associated with device [None]
  - Ovarian cyst [None]
  - Oophoritis [None]
  - Uterine pain [None]
  - Uterine contractions abnormal [None]
  - Nausea [None]
  - Oral contusion [None]
  - Contusion [None]
  - Urinary incontinence [None]
  - Seizure [None]
  - Impaired quality of life [None]

NARRATIVE: CASE EVENT DATE: 20250101
